FAERS Safety Report 11801250 (Version 6)
Quarter: 2021Q1

REPORT INFORMATION
  Report Type: Spontaneous
  Country: US (occurrence: US)
  Receive Date: 20151204
  Receipt Date: 20210202
  Transmission Date: 20210419
  Serious: No
  Sender: FDA-Public Use
  Company Number: US-PFIZER INC-2015408948

PATIENT
  Age: 63 Year
  Sex: Female
  Weight: 89.81 kg

DRUGS (5)
  1. DILANTIN [Suspect]
     Active Substance: PHENYTOIN
     Indication: SEIZURE
     Dosage: 200 MG, 2X/DAY, 100MG TWO PILLS IN THE MORNING AND TWO IN THE EVENING
     Dates: start: 1985
  2. DILANTIN [Suspect]
     Active Substance: PHENYTOIN
     Dosage: 600 MG, (500MG ONE DAY, THEN 600MG, THEN 500MG AGAIN AND SO FORTH)
  3. DILANTIN [Suspect]
     Active Substance: PHENYTOIN
     Dosage: 100 MG, UNK (TAKES 5 ONE DAY AND 6 THE NEXT DAY, ALTERNATING DOSES)
  4. DILANTIN [Suspect]
     Active Substance: PHENYTOIN
     Dosage: 500 MG, DAILY (100MG, 2 TABLETS AFTER BREAKFAST 8:30AM,1 TABLET AT LUNCH, 2 TABLETS IN EVENING)
     Route: 048
  5. DILANTIN [Suspect]
     Active Substance: PHENYTOIN
     Dosage: 500 MG, DAILY

REACTIONS (5)
  - Nervousness [Unknown]
  - Body height decreased [Unknown]
  - Arthralgia [Unknown]
  - Drug ineffective [Unknown]
  - Fatigue [Unknown]

NARRATIVE: CASE EVENT DATE: 2013
